FAERS Safety Report 5239958-X (Version None)
Quarter: 2007Q1

REPORT INFORMATION
  Report Type: 
  Country: None (occurrence: None)
  Receive Date: 20070216
  Receipt Date: 20070206
  Transmission Date: 20070707
  Serious: Yes (Hospitalization)
  Sender: FDA-Public Use
  Company Number: US-PFIZER INC-2006098702

PATIENT
  Sex: Female

DRUGS (5)
  1. NEURONTIN [Suspect]
     Indication: NEUROPATHY PERIPHERAL
  2. NEURONTIN [Suspect]
     Indication: NEURALGIA
  3. ALL OTHER THERAPEUTIC PRODUCTS [Suspect]
  4. ELAVIL [Concomitant]
  5. SYNTHROID [Concomitant]
     Dates: start: 19800101

REACTIONS (6)
  - ABNORMAL BEHAVIOUR [None]
  - DEPENDENCE [None]
  - DRUG INEFFECTIVE [None]
  - MAJOR DEPRESSION [None]
  - OVERDOSE [None]
  - SUICIDE ATTEMPT [None]
